FAERS Safety Report 5872590-3 (Version None)
Quarter: 2008Q3

REPORT INFORMATION
  Report Type: 
  Country: None (occurrence: None)
  Receive Date: 20080905
  Receipt Date: 20080828
  Transmission Date: 20090109
  Serious: Yes (Life-Threatening, Hospitalization, Other)
  Sender: FDA-Public Use
  Company Number: CN-ABBOTT-08P-035-0446854-00

PATIENT
  Sex: Female
  Weight: 50 kg

DRUGS (5)
  1. HUMIRA [Suspect]
     Indication: RHEUMATOID ARTHRITIS
     Route: 058
     Dates: start: 20071127, end: 20080318
  2. METHOTREXATE [Concomitant]
     Indication: DRUG USE FOR UNKNOWN INDICATION
     Dates: start: 20070815, end: 20080403
  3. FOLIC ACID [Concomitant]
     Indication: VITAMIN SUPPLEMENTATION
     Dates: start: 20071015, end: 20080403
  4. VITAMIN B4 [Concomitant]
     Indication: WHITE BLOOD CELL COUNT DECREASED
     Dates: start: 20071212, end: 20080220
  5. BATILOL [Concomitant]
     Indication: WHITE BLOOD CELL COUNT DECREASED
     Dates: start: 20071212, end: 20080220

REACTIONS (4)
  - LYMPH NODE TUBERCULOSIS [None]
  - SPLENIC LESION [None]
  - SPLENOMEGALY [None]
  - TUBERCULOSIS [None]
